FAERS Safety Report 21250801 (Version 1)
Quarter: 2022Q3

REPORT INFORMATION
  Report Type: Spontaneous
  Country: FR (occurrence: FR)
  Receive Date: 20220824
  Receipt Date: 20220824
  Transmission Date: 20221026
  Serious: Yes (Other)
  Sender: FDA-Public Use
  Company Number: None

PATIENT
  Age: 68 Year
  Sex: Female
  Weight: 140 kg

DRUGS (10)
  1. RENVELA [Suspect]
     Active Substance: SEVELAMER CARBONATE
     Indication: Renal failure
     Dosage: 2 DF, QD
     Route: 048
     Dates: start: 20220218, end: 20220310
  2. LINEZOLID [Suspect]
     Active Substance: LINEZOLID
     Indication: Antibiotic therapy
     Dosage: 1.2 G, QD
     Route: 048
     Dates: start: 20220224, end: 20220224
  3. SKENAN [Suspect]
     Active Substance: MORPHINE SULFATE
     Indication: Pain
     Dosage: 40 MG, QD
     Route: 048
     Dates: start: 20220218, end: 20220310
  4. MORPHINE SULFATE [Suspect]
     Active Substance: MORPHINE SULFATE
     Indication: Pain
     Dosage: 1 DF, QD
     Route: 048
     Dates: start: 20220218, end: 20220310
  5. SIVEXTRO [Suspect]
     Active Substance: TEDIZOLID PHOSPHATE
     Indication: Antibiotic therapy
     Dosage: 1 DF, QD
     Route: 048
     Dates: start: 20220225, end: 20220225
  6. LANSOPRAZOLE [Concomitant]
     Active Substance: LANSOPRAZOLE
  7. LEVOTHYROXINE SODIUM [Concomitant]
     Active Substance: LEVOTHYROXINE SODIUM
  8. ALPRAZOLAM [Concomitant]
     Active Substance: ALPRAZOLAM
  9. FERROUS FUMARATE [Concomitant]
     Active Substance: FERROUS FUMARATE
  10. DOXYCYCLINE [Concomitant]
     Active Substance: DOXYCYCLINE

REACTIONS (1)
  - Purpura [Unknown]

NARRATIVE: CASE EVENT DATE: 20220225
